FAERS Safety Report 25175093 (Version 1)
Quarter: 2025Q2

REPORT INFORMATION
  Report Type: Spontaneous
  Country: US (occurrence: US)
  Receive Date: 20250408
  Receipt Date: 20250408
  Transmission Date: 20250716
  Serious: Yes (Other)
  Sender: LEXICON PHARMACEUTICALS
  Company Number: US-LEX-000725

PATIENT
  Age: 89 Year
  Sex: Male

DRUGS (8)
  1. INPEFA [Suspect]
     Active Substance: SOTAGLIFLOZIN
     Indication: Diabetes mellitus
     Route: 048
     Dates: start: 20250206, end: 20250314
  2. FAMOTIDINE [Concomitant]
     Active Substance: FAMOTIDINE
  3. Centrium silver [Concomitant]
  4. TAMSULOSIN [Concomitant]
     Active Substance: TAMSULOSIN
  5. MAGNESIUM OXIDE [Concomitant]
     Active Substance: MAGNESIUM OXIDE
  6. BUMETANIDE [Concomitant]
     Active Substance: BUMETANIDE
  7. ELIQUIS [Concomitant]
     Active Substance: APIXABAN
  8. VYNDAMAX [Concomitant]
     Active Substance: TAFAMIDIS

REACTIONS (2)
  - Cardiac failure congestive [Unknown]
  - Diabetes mellitus [Unknown]

NARRATIVE: CASE EVENT DATE: 20250314
